FAERS Safety Report 5055514-0 (Version None)
Quarter: 2006Q3

REPORT INFORMATION
  Report Type: 
  Country: None (occurrence: None)
  Receive Date: 20060719
  Receipt Date: 20060502
  Transmission Date: 20061208
  Serious: Yes (Life-Threatening, Hospitalization)
  Sender: FDA-Public Use
  Company Number: DE-MERCK-0605DEU00013

PATIENT
  Age: 71 Year
  Sex: Female
  Weight: 59 kg

DRUGS (7)
  1. ZETIA [Suspect]
     Indication: HYPERCHOLESTEROLAEMIA
     Route: 048
     Dates: start: 20060422, end: 20060426
  2. ZETIA [Suspect]
     Indication: CORONARY ARTERY DISEASE
     Route: 048
     Dates: start: 20060422, end: 20060426
  3. AMLODIPINE BESYLATE [Concomitant]
     Route: 048
  4. ASPIRIN [Concomitant]
     Route: 048
  5. VITAMIN E ACETATE DL-FORM [Concomitant]
     Route: 048
  6. GINKGO [Concomitant]
     Route: 048
  7. SIMVASTATIN [Suspect]
     Route: 048
     Dates: start: 20060320, end: 20060101

REACTIONS (9)
  - CHILLS [None]
  - DIARRHOEA [None]
  - DISORIENTATION [None]
  - DYSSTASIA [None]
  - HEADACHE [None]
  - HYPERHIDROSIS [None]
  - LIVER DISORDER [None]
  - MYALGIA [None]
  - PYREXIA [None]
